FAERS Safety Report 14577253 (Version 1)
Quarter: 2018Q1

REPORT INFORMATION
  Report Type: Spontaneous
  Country: AU (occurrence: AU)
  Receive Date: 20180227
  Receipt Date: 20180227
  Transmission Date: 20180509
  Serious: Yes (Other)
  Sender: FDA-Public Use
  Company Number: AU-009507513-1802AUS010122

PATIENT
  Sex: Female

DRUGS (1)
  1. ELOCON [Suspect]
     Active Substance: MOMETASONE FUROATE
     Dosage: 2 APPLICATION, 1 TIME; STRENGTH 1 MG/G
     Route: 061
     Dates: start: 20170512, end: 20170513

REACTIONS (1)
  - Application site inflammation [Unknown]

NARRATIVE: CASE EVENT DATE: 20170513
